FAERS Safety Report 8942721 (Version 1)
Quarter: 2012Q4

REPORT INFORMATION
  Report Type: 
  Country: JP (occurrence: JP)
  Receive Date: 20121204
  Receipt Date: 20121204
  Transmission Date: 20130627
  Serious: Yes (Other)
  Sender: FDA-Public Use
  Company Number: JP-PFIZER INC-2012297918

PATIENT
  Sex: Female

DRUGS (3)
  1. AZULFIDINE EN [Suspect]
     Dosage: 500 mg, 2x/day (in morning and the evening)
     Route: 048
     Dates: start: 2008
  2. ONEALFA [Concomitant]
     Indication: OSTEOPOROSIS
     Dosage: UNK
  3. BONOTEO [Concomitant]
     Indication: OSTEOPOROSIS
     Dosage: UNK

REACTIONS (13)
  - Asthenia [Unknown]
  - Bedridden [Unknown]
  - Activities of daily living impaired [Unknown]
  - Oedema peripheral [Recovering/Resolving]
  - Arthralgia [Unknown]
  - Malaise [Unknown]
  - Night sweats [Unknown]
  - Rash [Unknown]
  - Abdominal discomfort [Unknown]
  - Nausea [Unknown]
  - Pain in extremity [Unknown]
  - White blood cell count increased [Unknown]
  - Bone density decreased [Unknown]
